FAERS Safety Report 5929993-8 (Version None)
Quarter: 2008Q4

REPORT INFORMATION
  Report Type: 
  Country: None (occurrence: None)
  Receive Date: 20081024
  Receipt Date: 20081014
  Transmission Date: 20090506
  Serious: Yes (Other)
  Sender: FDA-Public Use
  Company Number: PL-PFIZER INC-2008081226

PATIENT
  Sex: Female
  Weight: 65 kg

DRUGS (1)
  1. ECALTA [Suspect]
     Route: 042
     Dates: start: 20080919, end: 20080919

REACTIONS (6)
  - ANXIETY [None]
  - ASTHENIA [None]
  - CONVULSION [None]
  - DYSPNOEA [None]
  - PARAESTHESIA [None]
  - TREMOR [None]
